FAERS Safety Report 17288996 (Version 1)
Quarter: 2020Q1

REPORT INFORMATION
  Report Type: Spontaneous
  Country: US (occurrence: US)
  Receive Date: 20200120
  Receipt Date: 20200120
  Transmission Date: 20200409
  Serious: Yes (Other)
  Sender: FDA-Public Use
  Company Number: US-PFIZER INC-2020023451

PATIENT
  Age: 65 Year
  Sex: Female
  Weight: 58.97 kg

DRUGS (2)
  1. LYRICA [Suspect]
     Active Substance: PREGABALIN
     Indication: NEUROPATHY PERIPHERAL
     Dosage: 150 MG, 2X/DAY(150MG CAPSULE BY MOUTH TWICE A DAY)
     Route: 048
  2. LYRICA [Suspect]
     Active Substance: PREGABALIN
     Indication: FIBROMYALGIA

REACTIONS (8)
  - Drug dependence [Recovered/Resolved]
  - Visual impairment [Unknown]
  - Pain in extremity [Unknown]
  - Influenza like illness [Unknown]
  - Pain [Unknown]
  - Crying [Unknown]
  - Product dose omission [Unknown]
  - Cerebrovascular accident [Unknown]
